FAERS Safety Report 6906720-9 (Version None)
Quarter: 2010Q3

REPORT INFORMATION
  Report Type: 
  Country: None (occurrence: None)
  Receive Date: 20100804
  Receipt Date: 20100727
  Transmission Date: 20110219
  Serious: Yes (Other)
  Sender: FDA-Public Use
  Company Number: US-BAYER-201027339NA

PATIENT
  Age: 57 Year
  Sex: Female

DRUGS (3)
  1. AVELOX [Suspect]
     Indication: SINUSITIS
     Dosage: UNIT DOSE: 400 MG
     Route: 048
     Dates: start: 20100702, end: 20100702
  2. CRESTOR [Concomitant]
     Indication: BLOOD CHOLESTEROL INCREASED
     Dates: start: 20100702
  3. GASTROINTESTINAL COCKTAIL [Concomitant]

REACTIONS (6)
  - CHEST PAIN [None]
  - HYPERSENSITIVITY [None]
  - OROPHARYNGEAL DISCOMFORT [None]
  - PALMAR ERYTHEMA [None]
  - PRURITUS [None]
  - RASH MACULAR [None]
